FAERS Safety Report 7320195-X (Version None)
Quarter: 2011Q1

REPORT INFORMATION
  Report Type: 
  Country: None (occurrence: None)
  Receive Date: 20110228
  Receipt Date: 20110216
  Transmission Date: 20110831
  Serious: Yes (Hospitalization, Other)
  Sender: FDA-Public Use
  Company Number: PHEH2009US09113

PATIENT
  Sex: Male

DRUGS (13)
  1. DAPTOMYCIN [Concomitant]
  2. LOPRESSOR [Concomitant]
  3. ALTACE [Concomitant]
  4. DEXAMETHASONE [Concomitant]
  5. PLAVIX [Concomitant]
  6. LIPITOR [Concomitant]
  7. REVLIMID [Concomitant]
  8. ZOMETA [Suspect]
     Dosage: 4 MG, ONCE EVERY 3 MONTHS
     Dates: start: 20060322
  9. VELCADE [Concomitant]
  10. HYDROCHLOROTHIAZIDE [Concomitant]
  11. GLIPIZIDE [Concomitant]
  12. ZOMETA [Suspect]
     Dosage: MONTHLY
     Dates: start: 20040601
  13. ASPIRIN [Concomitant]

REACTIONS (66)
  - TROPONIN INCREASED [None]
  - INFECTION [None]
  - EMOTIONAL DISTRESS [None]
  - PERIODONTITIS [None]
  - TYPE 2 DIABETES MELLITUS [None]
  - SYNCOPE [None]
  - PAIN IN EXTREMITY [None]
  - PATHOLOGICAL FRACTURE [None]
  - DIARRHOEA [None]
  - OSTEONECROSIS OF JAW [None]
  - CORONARY ARTERY DISEASE [None]
  - HYPOKALAEMIA [None]
  - OSTEOARTHROPATHY [None]
  - MELAENA [None]
  - METASTATIC MALIGNANT MELANOMA [None]
  - NEOPLASM MALIGNANT [None]
  - CARDIAC FAILURE CONGESTIVE [None]
  - NASAL SEPTUM DEVIATION [None]
  - GAIT DISTURBANCE [None]
  - ASTHENIA [None]
  - GINGIVITIS [None]
  - PNEUMONIA [None]
  - ANXIETY [None]
  - APNOEA [None]
  - HYPOPNOEA [None]
  - CONJUNCTIVITIS [None]
  - HYPOTENSION [None]
  - BACK PAIN [None]
  - ATRIAL FIBRILLATION [None]
  - PAIN [None]
  - RHINITIS ALLERGIC [None]
  - ORTHOSTATIC HYPOTENSION [None]
  - OCULAR HYPERAEMIA [None]
  - BASAL CELL CARCINOMA [None]
  - ACTINIC KERATOSIS [None]
  - HYPERPLASIA [None]
  - BURSITIS [None]
  - DECREASED APPETITE [None]
  - ARTERIOSCLEROSIS CORONARY ARTERY [None]
  - UPPER RESPIRATORY TRACT INFECTION [None]
  - ANAEMIA [None]
  - MUSCLE STRAIN [None]
  - MELANOCYTIC NAEVUS [None]
  - HYPERTENSION [None]
  - OEDEMA PERIPHERAL [None]
  - RASH [None]
  - ARTHRALGIA [None]
  - SQUAMOUS CELL CARCINOMA [None]
  - HYPERLIPIDAEMIA [None]
  - BUNDLE BRANCH BLOCK [None]
  - PANCYTOPENIA [None]
  - ANGINA PECTORIS [None]
  - DEFORMITY [None]
  - INJURY [None]
  - HYPERGLYCAEMIA [None]
  - TYPE 1 DIABETES MELLITUS [None]
  - BRONCHITIS [None]
  - NEUROPATHY PERIPHERAL [None]
  - BLEPHARITIS [None]
  - LENTIGO [None]
  - ROTATOR CUFF SYNDROME [None]
  - URINARY TRACT INFECTION [None]
  - WEIGHT DECREASED [None]
  - THROMBOCYTOPENIA [None]
  - PYURIA [None]
  - CONSTIPATION [None]
